FAERS Safety Report 24729744 (Version 1)
Quarter: 2024Q4

REPORT INFORMATION
  Report Type: Spontaneous
  Country: US (occurrence: US)
  Receive Date: 20241213
  Receipt Date: 20241213
  Transmission Date: 20250115
  Serious: No
  Sender: ACCORD
  Company Number: US-Accord-446990

PATIENT
  Age: 83 Year
  Sex: Female
  Weight: 68.04 kg

DRUGS (1)
  1. LEVOTHYROXINE [Suspect]
     Active Substance: LEVOTHYROXINE
     Indication: Thyroiditis
     Dosage: STRENGTH: 88 MCG, DAILY
     Route: 048

REACTIONS (3)
  - Sciatica [Unknown]
  - Groin pain [Unknown]
  - Back pain [Unknown]

NARRATIVE: CASE EVENT DATE: 20240904
